FAERS Safety Report 6171588-8 (Version None)
Quarter: 2009Q2

REPORT INFORMATION
  Report Type: 
  Country: None (occurrence: None)
  Receive Date: 20090424
  Receipt Date: 20090219
  Transmission Date: 20091009
  Serious: No
  Sender: FDA-Public Use
  Company Number: ALL1-2009-00459

PATIENT
  Sex: Female

DRUGS (5)
  1. VYVANSE [Suspect]
     Indication: ATTENTION DEFICIT/HYPERACTIVITY DISORDER
     Dosage: 40 MG, 1X/DAY; QD, ORAL
     Route: 048
     Dates: start: 20090219
  2. EFFEXOR [Concomitant]
  3. XANAX [Concomitant]
  4. BENICAR [Concomitant]
  5. PREMARIN [Concomitant]

REACTIONS (3)
  - FATIGUE [None]
  - IRRITABILITY [None]
  - SOMNOLENCE [None]
